FAERS Safety Report 17437966 (Version 2)
Quarter: 2020Q1

REPORT INFORMATION
  Report Type: Spontaneous
  Country: NL (occurrence: NL)
  Receive Date: 20200219
  Receipt Date: 20200302
  Transmission Date: 20200409
  Serious: Yes (Hospitalization, Other)
  Sender: FDA-Public Use
  Company Number: NL-ACCORD-173023

PATIENT
  Age: 42 Year
  Sex: Male

DRUGS (8)
  1. SODIUM CHLORIDE. [Concomitant]
     Active Substance: SODIUM CHLORIDE
     Dosage: 2500 ML  0.9% SODIUM CHLORIDE CONTAINING 2 MMOL/L POTASSIUM CHLORIDE
  2. ETOPOSIDE. [Suspect]
     Active Substance: ETOPOSIDE
     Indication: EXTRAGONADAL PRIMARY GERM CELL TUMOUR
     Dosage: INFUSION TIME 1 HOUR, DAY 1-5 EVERY 3 WEEKS FOR SIX CYCLES
     Dates: start: 2017
  3. MAGNESIUM SULFATE. [Concomitant]
     Active Substance: MAGNESIUM SULFATE
     Dosage: 1000 ML 0.9% SODIUM CHLORIDE CONTAINING 2 MMOL/L POTASSIUM CHLORIDE
  4. POTASSIUM [Concomitant]
     Active Substance: POTASSIUM
     Dosage: 2500 ML  0.9% SODIUM CHLORIDE CONTAINING 2 MMOL/L POTASSIUM CHLORIDE
  5. POTASSIUM [Concomitant]
     Active Substance: POTASSIUM
     Dosage: 1000 ML 0.9% SODIUM CHLORIDE CONTAINING 2 MMOL/L POTASSIUM CHLORIDE
  6. MAGNESIUM SULFATE. [Concomitant]
     Active Substance: MAGNESIUM SULFATE
     Dosage: 2500 ML  0.9% SODIUM CHLORIDE CONTAINING 2 MMOL/L POTASSIUM CHLORIDE
  7. CISPLATIN. [Suspect]
     Active Substance: CISPLATIN
     Indication: EXTRAGONADAL PRIMARY GERM CELL TUMOUR
     Dosage: INFUSION TIME 2 HOURS, DAY 1-5 EVERY 3 WEEKS FOR SIX CYCLES
     Dates: start: 2017
  8. SODIUM CHLORIDE. [Concomitant]
     Active Substance: SODIUM CHLORIDE
     Dosage: 1000 ML 0.9% SODIUM CHLORIDE CONTAINING 2 MMOL/L POTASSIUM CHLORIDE

REACTIONS (10)
  - Off label use [Unknown]
  - Neutropenia [Recovered/Resolved]
  - Peripheral sensory neuropathy [Recovered/Resolved]
  - Gout [Unknown]
  - Pneumonia [Recovered/Resolved]
  - Vomiting [Recovered/Resolved]
  - Asthenia [Recovered/Resolved]
  - Nausea [Recovered/Resolved]
  - Anaemia [Recovered/Resolved]
  - Diarrhoea [Recovered/Resolved]

NARRATIVE: CASE EVENT DATE: 2017
